FAERS Safety Report 7641549-8 (Version None)
Quarter: 2011Q3

REPORT INFORMATION
  Report Type: 
  Country: None (occurrence: None)
  Receive Date: 20110728
  Receipt Date: 20110719
  Transmission Date: 20111222
  Serious: Yes (Other)
  Sender: FDA-Public Use
  Company Number: GB-JNJFOC-20110300226

PATIENT
  Age: 63 Year
  Sex: Female
  Weight: 98 kg

DRUGS (4)
  1. METHOTREXATE [Concomitant]
     Dates: start: 20001115
  2. REMICADE [Suspect]
     Route: 042
     Dates: start: 20060101
  3. METHOTREXATE [Concomitant]
     Dates: start: 20050601
  4. REMICADE [Suspect]
     Indication: RHEUMATOID ARTHRITIS
     Route: 042
     Dates: start: 20001115

REACTIONS (1)
  - BASAL CELL CARCINOMA [None]
